FAERS Safety Report 12634407 (Version 1)
Quarter: 2016Q3

REPORT INFORMATION
  Report Type: Spontaneous
  Country: US (occurrence: US)
  Receive Date: 20160809
  Receipt Date: 20160809
  Transmission Date: 20161109
  Serious: No
  Sender: FDA-Public Use
  Company Number: US-WATSON-2016-04213

PATIENT
  Age: 62 Year
  Sex: Male

DRUGS (2)
  1. BROVANA [Concomitant]
     Active Substance: ARFORMOTEROL TARTRATE
     Indication: EMPHYSEMA
     Dosage: UNK, UNKNOWN
     Route: 055
  2. BUDESONIDE (WATSON LABORATORIES) [Suspect]
     Active Substance: BUDESONIDE
     Indication: EMPHYSEMA
     Dosage: 1 DF, BID
     Route: 055

REACTIONS (1)
  - Drug effect decreased [Not Recovered/Not Resolved]
